FAERS Safety Report 4896518-8 (Version None)
Quarter: 2006Q1

REPORT INFORMATION
  Report Type: 
  Country: None (occurrence: None)
  Receive Date: 20060131
  Receipt Date: 20051013
  Transmission Date: 20060701
  Serious: Yes (Hospitalization)
  Sender: FDA-Public Use
  Company Number: FR-GLAXOSMITHKLINE-B0397567A

PATIENT
  Age: 44 Year
  Sex: Female
  Weight: 44 kg

DRUGS (1)
  1. LAMICTAL [Suspect]
     Dosage: 25MG PER DAY
     Route: 048
     Dates: start: 20050829, end: 20050909

REACTIONS (20)
  - ALANINE AMINOTRANSFERASE INCREASED [None]
  - ANAEMIA [None]
  - ASPARTATE AMINOTRANSFERASE INCREASED [None]
  - C-REACTIVE PROTEIN INCREASED [None]
  - CONJUNCTIVITIS [None]
  - DISSEMINATED INTRAVASCULAR COAGULATION [None]
  - FACE OEDEMA [None]
  - HEADACHE [None]
  - HYPERSENSITIVITY [None]
  - KAOLIN CEPHALIN CLOTTING TIME PROLONGED [None]
  - LACRIMATION INCREASED [None]
  - LEUKOPENIA [None]
  - PERICARDITIS [None]
  - PLEURISY [None]
  - PROTHROMBIN LEVEL DECREASED [None]
  - PYREXIA [None]
  - RASH MACULAR [None]
  - SYSTEMIC LUPUS ERYTHEMATOSUS [None]
  - THROMBOCYTOPENIA [None]
  - VOMITING [None]
